FAERS Safety Report 9525486 (Version 2)
Quarter: 2013Q4

REPORT INFORMATION
  Report Type: Spontaneous
  Country: US (occurrence: US)
  Receive Date: 20130916
  Receipt Date: 20131023
  Transmission Date: 20140711
  Serious: Yes (Hospitalization)
  Sender: FDA-Public Use
  Company Number: US-PFIZER INC-2013264670

PATIENT
  Age: 64 Year
  Sex: Male
  Weight: 118 kg

DRUGS (8)
  1. TIKOSYN [Suspect]
     Indication: ATRIAL FIBRILLATION
     Dosage: 0.5 MG, 2X/DAY
     Route: 048
     Dates: start: 2010, end: 2012
  2. TIKOSYN [Suspect]
     Dosage: 0.5 MG, 2X/DAY
     Route: 048
     Dates: start: 201208, end: 20130708
  3. TIKOSYN [Suspect]
     Dosage: 0.5 MG, 2X/DAY
     Route: 048
     Dates: start: 20130710
  4. XARELTO [Concomitant]
     Dosage: 20 MG, 1X/DAY
  5. TAMSULOSIN [Concomitant]
     Dosage: 0.4 MG, 1X/DAY
  6. AMLODIPINE/BENAZEPRIL [Concomitant]
     Indication: HYPERTENSION
     Dosage: 10/20 MG, 1X/DAY
  7. DONEPEZIL [Concomitant]
     Dosage: 10 MG, 1X/DAY
  8. PRESERVISION [Concomitant]
     Indication: VITAMIN SUPPLEMENTATION
     Dosage: 240 (TWO DOSES OF 120), 1X/DAY

REACTIONS (1)
  - Arthropathy [Unknown]
